FAERS Safety Report 7903494-X (Version None)
Quarter: 2011Q4

REPORT INFORMATION
  Report Type: 
  Country: None (occurrence: None)
  Receive Date: 20111107
  Receipt Date: 20111031
  Transmission Date: 20120403
  Serious: No
  Sender: FDA-Public Use
  Company Number: CPI 2780

PATIENT
  Age: 2 Year
  Sex: Male

DRUGS (2)
  1. HEPARIN [Suspect]
     Indication: RESPIRATORY FUME INHALATION DISORDER
     Dosage: 5000U HEP ALTERNATING W/
  2. ACETYLCYSTEINE [Suspect]
     Indication: THERMAL BURN
     Dosage: 3ML NAC Q4H ALTERNAT W

REACTIONS (4)
  - THERMAL BURN [None]
  - DISSEMINATED INTRAVASCULAR COAGULATION [None]
  - SHOCK [None]
  - SYSTEMIC INFLAMMATORY RESPONSE SYNDROME [None]
